FAERS Safety Report 16168439 (Version 5)
Quarter: 2022Q3

REPORT INFORMATION
  Report Type: Report from Study
  Country: JP (occurrence: JP)
  Receive Date: 20190408
  Receipt Date: 20220713
  Transmission Date: 20221027
  Serious: Yes (Hospitalization, Other)
  Sender: FDA-Public Use
  Company Number: JP-GLAXOSMITHKLINE-JP2019JPN042449

PATIENT

DRUGS (11)
  1. BELIMUMAB [Suspect]
     Active Substance: BELIMUMAB
     Indication: Systemic lupus erythematosus
     Dosage: 10 MG/KG, EVERY OTHER WEEK
     Route: 041
     Dates: start: 20180822, end: 20180905
  2. BELIMUMAB [Suspect]
     Active Substance: BELIMUMAB
     Indication: Autoimmune haemolytic anaemia
     Dosage: 10 MG/KG
     Route: 041
     Dates: start: 20181004, end: 20181004
  3. BELIMUMAB [Suspect]
     Active Substance: BELIMUMAB
     Indication: Autoimmune hepatitis
  4. TACROLIMUS [Suspect]
     Active Substance: TACROLIMUS
     Indication: Systemic lupus erythematosus
     Dosage: 4 MG, 1D
     Dates: start: 20130507, end: 20190110
  5. CELLCEPT [Suspect]
     Active Substance: MYCOPHENOLATE MOFETIL
     Indication: Systemic lupus erythematosus
     Dosage: 2000 MG, 1D
     Dates: start: 20140626, end: 20190110
  6. MEDROL [Suspect]
     Active Substance: METHYLPREDNISOLONE
     Indication: Systemic lupus erythematosus
     Dosage: 48 MG, 1D
     Dates: start: 201201
  7. MEDROL [Suspect]
     Active Substance: METHYLPREDNISOLONE
     Dosage: 48 MG, 1D
     Route: 048
     Dates: start: 20180822, end: 20180905
  8. MEDROL [Suspect]
     Active Substance: METHYLPREDNISOLONE
     Dosage: 36 MG, 1D
     Route: 048
     Dates: start: 20180906, end: 20181004
  9. ONEALFA [Concomitant]
     Active Substance: ALFACALCIDOL
     Indication: Osteoporosis
     Dosage: 0.5 ?G, 1D
  10. RABEPRAZOLE SODIUM [Concomitant]
     Active Substance: RABEPRAZOLE SODIUM
     Indication: Gastric ulcer
     Dosage: 10 MG, 1D
  11. METHYLPREDNISOLONE [Concomitant]
     Active Substance: METHYLPREDNISOLONE

REACTIONS (3)
  - Pulmonary nocardiosis [Recovered/Resolved]
  - Product use in unapproved indication [Unknown]
  - Off label use [Unknown]

NARRATIVE: CASE EVENT DATE: 20180822
